FAERS Safety Report 5797667-2 (Version None)
Quarter: 2008Q3

REPORT INFORMATION
  Report Type: 
  Country: None (occurrence: None)
  Receive Date: 20080702
  Receipt Date: 20080619
  Transmission Date: 20090109
  Serious: Yes (Other)
  Sender: FDA-Public Use
  Company Number: GR-JNJFOC-20080605244

PATIENT
  Sex: Female

DRUGS (7)
  1. DOXORUBICIN HCL [Suspect]
     Indication: CERVIX CARCINOMA
     Route: 042
  2. CISPLATIN [Suspect]
     Indication: CERVIX CARCINOMA
     Dosage: 20-25 MG/M2
     Route: 042
  3. METHYLPREDNISOLONE [Concomitant]
     Indication: PREMEDICATION
     Route: 048
  4. METHYLPREDNISOLONE [Concomitant]
     Route: 042
  5. CIMETIDINE [Concomitant]
     Indication: PREMEDICATION
     Route: 048
  6. CIMETIDINE [Concomitant]
     Route: 042
  7. DIPHENHYDRAMINE HCL [Concomitant]
     Indication: PREMEDICATION
     Route: 042

REACTIONS (1)
  - PROCTITIS [None]
